FAERS Safety Report 7024814-7 (Version None)
Quarter: 2010Q4

REPORT INFORMATION
  Report Type: 
  Country: None (occurrence: None)
  Receive Date: 20101001
  Receipt Date: 20100928
  Transmission Date: 20110411
  Serious: Yes (Death)
  Sender: FDA-Public Use
  Company Number: IT-JNJFOC-20100903266

PATIENT
  Sex: Female

DRUGS (4)
  1. INVEGA [Suspect]
     Indication: PSYCHOTIC DISORDER
     Route: 048
  2. TRAMADOLO [Interacting]
     Indication: ARTHRALGIA
  3. IDROQUARK [Concomitant]
     Indication: PRODUCT USED FOR UNKNOWN INDICATION
  4. HALCION [Concomitant]
     Indication: PRODUCT USED FOR UNKNOWN INDICATION

REACTIONS (8)
  - COMA [None]
  - DRUG INTERACTION [None]
  - HYPERTENSION [None]
  - HYPOTONIA [None]
  - MIOSIS [None]
  - NEUROLEPTIC MALIGNANT SYNDROME [None]
  - RESPIRATORY FAILURE [None]
  - VENTRICULAR FIBRILLATION [None]
